FAERS Safety Report 22630637 (Version 1)
Quarter: 2023Q2

REPORT INFORMATION
  Report Type: Spontaneous
  Country: IN (occurrence: IN)
  Receive Date: 20230622
  Receipt Date: 20230622
  Transmission Date: 20230721
  Serious: Yes (Death)
  Sender: FDA-Public Use
  Company Number: IN-GE HEALTHCARE-2023CSU004926

PATIENT
  Age: 67 Year
  Sex: Female
  Weight: 79 kg

DRUGS (7)
  1. OMNIPAQUE [Suspect]
     Active Substance: IOHEXOL
     Indication: Positron emission tomogram
     Dosage: 65 ML, SINGLE
     Route: 042
     Dates: start: 20230615, end: 20230615
  2. OMNIPAQUE [Suspect]
     Active Substance: IOHEXOL
     Indication: Plasmacytoma
  3. IOHEXOL [Suspect]
     Active Substance: IOHEXOL
     Indication: Computerised tomogram
     Dosage: 70 ML, SINGLE
     Route: 042
     Dates: start: 20230527, end: 20230527
  4. IOHEXOL [Suspect]
     Active Substance: IOHEXOL
     Indication: Product used for unknown indication
  5. ETORICOXIB [Concomitant]
     Active Substance: ETORICOXIB
     Indication: Back pain
     Dosage: 90 MG, BID
     Route: 048
     Dates: start: 20230526
  6. PANTOP D [Concomitant]
     Dosage: 40 MG, QD
     Route: 048
     Dates: start: 20230526
  7. METHYLCOBALAMIN [Concomitant]
     Active Substance: METHYLCOBALAMIN
     Dosage: 1500 MCG, QD
     Route: 048
     Dates: start: 20230526

REACTIONS (2)
  - Acute coronary syndrome [Fatal]
  - Cardiac arrest [Fatal]

NARRATIVE: CASE EVENT DATE: 20230615
